FAERS Safety Report 11894456 (Version 2)
Quarter: 2016Q1

REPORT INFORMATION
  Report Type: Spontaneous
  Country: DE (occurrence: DE)
  Receive Date: 20160107
  Receipt Date: 20160112
  Transmission Date: 20160526
  Serious: Yes (Other)
  Sender: FDA-Public Use
  Company Number: DE-SUN PHARMACEUTICAL INDUSTRIES LTD-2015R1-109110

PATIENT
  Age: 63 Year
  Sex: Female

DRUGS (2)
  1. FOTEMUSTINE [Concomitant]
     Active Substance: FOTEMUSTINE
     Indication: CHEMOTHERAPY
     Dosage: UNK
     Route: 065
  2. ORFIRIL LONG 1000 MG [Suspect]
     Active Substance: VALPROIC ACID
     Indication: PRODUCT USED FOR UNKNOWN INDICATION
     Dosage: UNK
     Route: 065

REACTIONS (1)
  - Dementia [Recovered/Resolved]
